FAERS Safety Report 7125594-7 (Version None)
Quarter: 2010Q4

REPORT INFORMATION
  Report Type: 
  Country: None (occurrence: None)
  Receive Date: 20101129
  Receipt Date: 20101116
  Transmission Date: 20110411
  Serious: Yes (Congenital Anomaly, Other)
  Sender: FDA-Public Use
  Company Number: GB-ELI_LILLY_AND_COMPANY-GB201011004126

PATIENT

DRUGS (5)
  1. FLUOXETINE [Suspect]
     Indication: DEPRESSION
     Dosage: 20 MG, DAILY (1/D)
     Route: 064
     Dates: start: 20090817, end: 20091216
  2. METHADONE [Concomitant]
     Indication: DRUG DEPENDENCE
     Dosage: 130 MG, DAILY (1/D)
     Route: 064
     Dates: start: 20081101, end: 20100525
  3. METHADONE [Concomitant]
     Dosage: 100 MG, DAILY (1/D)
     Dates: start: 20100526
  4. TRAZODONE [Concomitant]
     Indication: DEPRESSION
     Dosage: 50 MG, DAILY (1/D)
     Route: 064
     Dates: start: 20090817, end: 20091216
  5. CERAZETTE [Concomitant]
     Indication: CONTRACEPTION
     Dosage: 75 MG, DAILY (1/D)
     Route: 064
     Dates: start: 20091103, end: 20091207

REACTIONS (4)
  - CHOROIDAL COLOBOMA [None]
  - DRUG EXPOSURE DURING PREGNANCY [None]
  - IRIS COLOBOMA [None]
  - OPTIC NERVE DISORDER [None]
